FAERS Safety Report 23041573 (Version 2)
Quarter: 2023Q4

REPORT INFORMATION
  Report Type: Spontaneous
  Country: IT (occurrence: IT)
  Receive Date: 20231007
  Receipt Date: 20231012
  Transmission Date: 20240110
  Serious: Yes (Hospitalization)
  Sender: FDA-Public Use
  Company Number: None

PATIENT
  Age: 81 Year
  Sex: Male
  Weight: 50 kg

DRUGS (1)
  1. HALOPERIDOL DECANOATE [Suspect]
     Active Substance: HALOPERIDOL DECANOATE
     Indication: Psychomotor hyperactivity
     Dosage: SOMMINISTRATE 8-10 FL IN TOTALE PER 6 GIORNI?50 MG/ML
     Route: 030

REACTIONS (1)
  - Sopor [Recovered/Resolved with Sequelae]

NARRATIVE: CASE EVENT DATE: 20230715
